FAERS Safety Report 6421567-8 (Version None)
Quarter: 2009Q4

REPORT INFORMATION
  Report Type: 
  Country: None (occurrence: None)
  Receive Date: 20091030
  Receipt Date: 20091019
  Transmission Date: 20100525
  Serious: Yes (Death)
  Sender: FDA-Public Use
  Company Number: CO-JNJFOC-20091006245

PATIENT
  Age: 79 Year
  Sex: Female

DRUGS (3)
  1. DORIBAX [Suspect]
     Indication: PULMONARY SEPSIS
     Route: 041
  2. LINEZOLID [Concomitant]
     Indication: PULMONARY SEPSIS
  3. MEROPENEM [Concomitant]
     Indication: PULMONARY SEPSIS

REACTIONS (1)
  - SEPTIC SHOCK [None]
